FAERS Safety Report 11823371 (Version 1)
Quarter: 2015Q4

REPORT INFORMATION
  Report Type: Spontaneous
  Country: US (occurrence: US)
  Receive Date: 20151210
  Receipt Date: 20151210
  Transmission Date: 20160305
  Serious: Yes (Other)
  Sender: FDA-Public Use
  Company Number: US-SA-2015SA114375

PATIENT
  Age: 61 Year
  Sex: Female

DRUGS (4)
  1. LANTUS SOLOSTAR [Suspect]
     Active Substance: INSULIN GLARGINE
     Indication: TYPE 2 DIABETES MELLITUS
     Dosage: 6 + 10 U
     Route: 065
  2. SOLOSTAR [Concomitant]
     Active Substance: DEVICE
  3. LANTUS SOLOSTAR [Suspect]
     Active Substance: INSULIN GLARGINE
     Indication: TYPE 2 DIABETES MELLITUS
     Dosage: DOSE:12 U IN AM/7-8U?PM
     Route: 065
     Dates: start: 2005
  4. SOLOSTAR [Concomitant]
     Active Substance: DEVICE
     Dates: start: 2005

REACTIONS (3)
  - Rheumatoid arthritis [Not Recovered/Not Resolved]
  - Blood glucose decreased [Unknown]
  - Drug administration error [Unknown]
